FAERS Safety Report 21585364 (Version 1)
Quarter: 2022Q4

REPORT INFORMATION
  Report Type: Spontaneous
  Country: US (occurrence: US)
  Receive Date: 20221111
  Receipt Date: 20221111
  Transmission Date: 20230113
  Serious: No
  Sender: FDA-Public Use
  Company Number: US-NOVOPROD-890172

PATIENT
  Sex: Female

DRUGS (5)
  1. TRESIBA [Suspect]
     Active Substance: INSULIN DEGLUDEC
     Dosage: 30-35 UNITS AT NIGHT
  2. TRESIBA [Suspect]
     Active Substance: INSULIN DEGLUDEC
     Indication: Product used for unknown indication
     Dosage: 40 IU, QD
     Route: 058
     Dates: start: 202201
  3. NOVOLOG MIX 70/30 [Concomitant]
     Active Substance: INSULIN ASPART
     Indication: Product used for unknown indication
     Dosage: STARTED AT 49 IN THE MORNINGS AND 15 UNITS AT DINNER
     Route: 058
  4. NOVOLOG MIX 70/30 [Concomitant]
     Active Substance: INSULIN ASPART
     Dosage: 30-35 UNIT IN THE MORNING, 15 UNITS AT DINNER
     Route: 058
  5. BASAGLAR [Concomitant]
     Active Substance: INSULIN GLARGINE
     Indication: Product used for unknown indication
     Dosage: 40 UNITS
     Route: 058

REACTIONS (5)
  - Inadequate diet [Unknown]
  - Stress [Unknown]
  - Blood glucose fluctuation [Unknown]
  - Rash [Recovered/Resolved]
  - Product storage error [Unknown]
